FAERS Safety Report 4309775-3 (Version None)
Quarter: 2004Q1

REPORT INFORMATION
  Report Type: 
  Country: None (occurrence: None)
  Receive Date: 20040301
  Receipt Date: 20040218
  Transmission Date: 20041129
  Serious: Yes (Death)
  Sender: FDA-Public Use
  Company Number: US-JNJFOC-20040201232

PATIENT
  Age: 70 Year
  Sex: Female

DRUGS (9)
  1. ELMIRON [Suspect]
     Indication: DRUG USE FOR UNKNOWN INDICATION
     Dosage: 100 MG, 3 IN  1 DAY, ORAL
     Route: 048
     Dates: start: 20030801, end: 20031130
  2. URISED (URISED) [Concomitant]
  3. DILANTIN [Concomitant]
  4. LEVOTHYROID (LEVOTHYROXINE) [Concomitant]
  5. PRED FORTE (PREDNISOLONE ACETATE) [Concomitant]
  6. COSOPT (COSOPT) [Concomitant]
  7. METHADONE HCL [Concomitant]
  8. VICODIN [Concomitant]
  9. LEXAPRO (ALL OTHER THERAPEUTIC PRODUCTS) [Concomitant]

REACTIONS (1)
  - DEATH [None]
